FAERS Safety Report 8834827 (Version 1)
Quarter: 2012Q4

REPORT INFORMATION
  Report Type: 
  Country: GB (occurrence: GB)
  Receive Date: 20121010
  Receipt Date: 20121010
  Transmission Date: 20130627
  Serious: Yes (Other)
  Sender: FDA-Public Use
  Company Number: GB-GLAXOSMITHKLINE-B0835098A

PATIENT
  Age: 43 Year
  Sex: Male
  Weight: 80 kg

DRUGS (3)
  1. TROBALT [Suspect]
     Indication: EPILEPSY
     Dosage: 600MG Per day
     Route: 048
     Dates: start: 201207, end: 20120814
  2. CARBAMAZEPINE [Concomitant]
     Indication: EPILEPSY
     Dosage: 1000MG Per day
     Route: 048
  3. ZONISAMIDE [Concomitant]
     Indication: EPILEPSY
     Route: 048

REACTIONS (2)
  - Diarrhoea [Recovered/Resolved]
  - Weight decreased [Recovered/Resolved]
